FAERS Safety Report 17719739 (Version 1)
Quarter: 2020Q2

REPORT INFORMATION
  Report Type: Spontaneous
  Country: US (occurrence: US)
  Receive Date: 20200428
  Receipt Date: 20200428
  Transmission Date: 20200714
  Serious: No
  Sender: FDA-Public Use
  Company Number: US-ARBOR PHARMACEUTICALS, LLC-US-2019ARB001189

PATIENT
  Sex: Female

DRUGS (1)
  1. ERYTHROMYCIN ETHYLSUCCINATE. [Suspect]
     Active Substance: ERYTHROMYCIN ETHYLSUCCINATE
     Indication: DIVERTICULUM
     Dosage: 5 ML, BID
     Route: 048
     Dates: start: 2016

REACTIONS (2)
  - Product taste abnormal [Unknown]
  - Product dose omission [Unknown]

NARRATIVE: CASE EVENT DATE: 201907
